FAERS Safety Report 21344657 (Version 1)
Quarter: 2022Q3

REPORT INFORMATION
  Report Type: Spontaneous
  Country: DE (occurrence: DE)
  Receive Date: 20220916
  Receipt Date: 20220916
  Transmission Date: 20221027
  Serious: Yes (Other)
  Sender: FDA-Public Use
  Company Number: DE-NOVARTISPH-NVSC2022DE209264

PATIENT
  Sex: Male

DRUGS (3)
  1. LEVETIRACETAM [Suspect]
     Active Substance: LEVETIRACETAM
     Indication: Seizure
     Dosage: 500 MG, BID (1-0-1)
     Route: 065
  2. LEVETIRACETAM [Suspect]
     Active Substance: LEVETIRACETAM
     Dosage: UNK (STRENGTH: 1000 MG)
     Route: 065
  3. AMLODIPINE BESYLATE [Suspect]
     Active Substance: AMLODIPINE BESYLATE
     Indication: Blood pressure increased
     Dosage: 0.5 DOSAGE FORM, BID
     Route: 065

REACTIONS (13)
  - Seizure [Unknown]
  - Dry mouth [Unknown]
  - Hyperhidrosis [Unknown]
  - Frequent bowel movements [Unknown]
  - Pruritus [Unknown]
  - Cough [Unknown]
  - Nasal inflammation [Unknown]
  - Pharyngeal inflammation [Unknown]
  - Fatigue [Unknown]
  - Rash [Unknown]
  - Dizziness [Unknown]
  - Balance disorder [Unknown]
  - Wrong technique in product usage process [Unknown]
